FAERS Safety Report 20263842 (Version 1)
Quarter: 2021Q4

REPORT INFORMATION
  Report Type: Spontaneous
  Country: JP (occurrence: JP)
  Receive Date: 20211231
  Receipt Date: 20211231
  Transmission Date: 20220303
  Serious: Yes (Other)
  Sender: FDA-Public Use
  Company Number: JP-MACLEODS PHARMACEUTICALS US LTD-MAC2021033958

PATIENT

DRUGS (2)
  1. LIDOCAINE [Suspect]
     Active Substance: LIDOCAINE
     Indication: Local anaesthesia
     Dosage: 80 MILLIGRAM (EIGHT MILLILITERS OF 1% LIDOCAINE), INFILTERED INTO ORAL MUCOSA, INJECTION
     Route: 048
  2. EPINEPHRINE [Concomitant]
     Active Substance: EPINEPHRINE
     Indication: Product used for unknown indication
     Dosage: 80 MICROGRAM
     Route: 065

REACTIONS (1)
  - Accelerated idioventricular rhythm [Recovered/Resolved]
